FAERS Safety Report 6520430-1 (Version None)
Quarter: 2009Q4

REPORT INFORMATION
  Report Type: 
  Country: None (occurrence: None)
  Receive Date: 20091229
  Receipt Date: 20091216
  Transmission Date: 20100525
  Serious: Yes (Other)
  Sender: FDA-Public Use
  Company Number: PHEH2009US17927

PATIENT
  Sex: Female

DRUGS (4)
  1. EXELON [Suspect]
     Dosage: UNK
     Route: 062
  2. NEXIUM [Concomitant]
  3. ANTIHYPERTENSIVE DRUGS [Concomitant]
  4. CHOLESTEROL- AND TRIGLYCERIDE REDUCERS [Concomitant]

REACTIONS (3)
  - CONDITION AGGRAVATED [None]
  - DRUG INEFFECTIVE [None]
  - TONGUE PARALYSIS [None]
